FAERS Safety Report 20290247 (Version 2)
Quarter: 2022Q1

REPORT INFORMATION
  Report Type: Spontaneous
  Country: US (occurrence: US)
  Receive Date: 20220104
  Receipt Date: 20220114
  Transmission Date: 20220423
  Serious: Yes (Hospitalization, Other)
  Sender: FDA-Public Use
  Company Number: US-CATALYST PHARMACEUTICALS, INC-2021CAT00540

PATIENT
  Age: 75 Year
  Sex: Female

DRUGS (1)
  1. FIRDAPSE [Suspect]
     Active Substance: AMIFAMPRIDINE PHOSPHATE
     Indication: Myasthenic syndrome
     Dosage: 2 TABLETS (20 MG), 4X/DAY

REACTIONS (2)
  - Abdominal wall infection [Recovered/Resolved]
  - Gastrostomy tube removal [Recovered/Resolved]

NARRATIVE: CASE EVENT DATE: 20210901
